FAERS Safety Report 23280945 (Version 2)
Quarter: 2024Q1

REPORT INFORMATION
  Report Type: Spontaneous
  Country: US (occurrence: US)
  Receive Date: 20231211
  Receipt Date: 20240320
  Transmission Date: 20240410
  Serious: No
  Sender: FDA-Public Use
  Company Number: US-NOVEN PHARMACEUTICALS, INC.-2023-NOV-US000678

PATIENT
  Sex: Female

DRUGS (1)
  1. ESTRADIOL [Suspect]
     Active Substance: ESTRADIOL
     Indication: Menopause
     Dosage: 0.1 MG, UNK
     Route: 062

REACTIONS (7)
  - Hot flush [Not Recovered/Not Resolved]
  - Blood oestrogen decreased [Not Recovered/Not Resolved]
  - Product administered at inappropriate site [Not Recovered/Not Resolved]
  - Product residue present [Not Recovered/Not Resolved]
  - Product adhesion issue [Not Recovered/Not Resolved]
  - Device issue [Not Recovered/Not Resolved]
  - Device colour issue [Not Recovered/Not Resolved]

NARRATIVE: CASE EVENT DATE: 20230101
